FAERS Safety Report 5420043-9 (Version None)
Quarter: 2007Q3

REPORT INFORMATION
  Report Type: 
  Country: None (occurrence: None)
  Receive Date: 20070815
  Receipt Date: 20070809
  Transmission Date: 20080115
  Serious: Yes (Death)
  Sender: FDA-Public Use
  Company Number: 2007-162659-NL

PATIENT
  Age: 36 Year
  Sex: Female

DRUGS (3)
  1. FOLLITROPIN BETA [Suspect]
     Dosage: DF
     Route: 030
     Dates: start: 20060104, end: 20060501
  2. CHORIONIC GONADOTROPIN [Suspect]
     Dosage: DF
     Route: 030
     Dates: start: 20060104, end: 20060501
  3. PROGESTERONE [Suspect]
     Dosage: DF
     Dates: start: 20060221, end: 20060501

REACTIONS (1)
  - PANCREATIC CARCINOMA [None]
